FAERS Safety Report 19236200 (Version 1)
Quarter: 2021Q2

REPORT INFORMATION
  Report Type: Spontaneous
  Country: FR (occurrence: FR)
  Receive Date: 20210510
  Receipt Date: 20210510
  Transmission Date: 20210717
  Serious: Yes (Hospitalization, Other)
  Sender: FDA-Public Use
  Company Number: FR-SA-2021SA153739

PATIENT
  Age: 64 Year
  Sex: Female
  Weight: 51 kg

DRUGS (11)
  1. ISATUXIMAB [Suspect]
     Active Substance: ISATUXIMAB
     Dosage: 10 MG/KG,  RECOVERY, REALIZATION ON D1 / D8 / D15 / D22 OF TREATMENT FREQUENCY: 4 TOTAL
     Route: 041
     Dates: start: 20210217
  2. METOPROLOL FUMARATE [Concomitant]
     Active Substance: METOPROLOL FUMARATE
  3. FENTANYL. [Concomitant]
     Active Substance: FENTANYL
  4. LOVENOX [Concomitant]
     Active Substance: ENOXAPARIN SODIUM
  5. POMALIDOMIDE [Suspect]
     Active Substance: POMALIDOMIDE
     Dosage: 4 MG, QD, EVERY DAY FOR 3 WEEKS THEN STOP FOR 1 WEEK
     Route: 048
     Dates: start: 20210217
  6. VALACICLOVIR [Concomitant]
     Active Substance: VALACYCLOVIR HYDROCHLORIDE
  7. POMALIDOMIDE [Suspect]
     Active Substance: POMALIDOMIDE
     Indication: PLASMA CELL MYELOMA
     Dosage: 4 MG, QD, CANCELLATION ON D4
     Route: 048
     Dates: start: 20210202, end: 20210205
  8. DEXAMETHASONE. [Suspect]
     Active Substance: DEXAMETHASONE
     Dosage: 40 MG, QW, 1 TABLET PER WEEK ON TUESDAY MORNING.
     Route: 048
     Dates: start: 20210217
  9. ISATUXIMAB [Suspect]
     Active Substance: ISATUXIMAB
     Indication: PLASMA CELL MYELOMA
     Dosage: 10 MG/KG, TOTAL, INTERRUPTED ON D4.
     Route: 041
     Dates: start: 20210202, end: 20210202
  10. OXYCODONE [Concomitant]
     Active Substance: OXYCODONE
  11. DEXAMETHASONE. [Suspect]
     Active Substance: DEXAMETHASONE
     Indication: PLASMA CELL MYELOMA
     Dosage: 40 MG, QW, 1 TABLET PER WEEK ON TUESDAY MORNING.
     Route: 048
     Dates: start: 20210202, end: 20210205

REACTIONS (1)
  - Pancytopenia [Recovered/Resolved]

NARRATIVE: CASE EVENT DATE: 20210227
